FAERS Safety Report 13104734 (Version 3)
Quarter: 2017Q2

REPORT INFORMATION
  Report Type: Spontaneous
  Country: US (occurrence: US)
  Receive Date: 20170111
  Receipt Date: 20170502
  Transmission Date: 20170830
  Serious: No
  Sender: FDA-Public Use
  Company Number: US-PFIZER INC-2017007247

PATIENT
  Age: 68 Year
  Sex: Male

DRUGS (2)
  1. SUTENT [Suspect]
     Active Substance: SUNITINIB MALATE
     Dosage: 37.5 MG, CYCLIC
  2. SUTENT [Suspect]
     Active Substance: SUNITINIB MALATE
     Indication: RENAL CANCER
     Dosage: 50 MG, CYCLIC (ONCE A DAY FOR 2 WEEKS AND OFF ONE WEEK)
     Dates: start: 20160801

REACTIONS (3)
  - Fatigue [Not Recovered/Not Resolved]
  - Dyspnoea [Unknown]
  - Malaise [Not Recovered/Not Resolved]
